FAERS Safety Report 25285138 (Version 2)
Quarter: 2025Q2

REPORT INFORMATION
  Report Type: Report from Study
  Country: US (occurrence: US)
  Receive Date: 20250509
  Receipt Date: 20250514
  Transmission Date: 20250717
  Serious: Yes (Hospitalization)
  Sender: ABBVIE
  Company Number: US-ABBVIE-6212140

PATIENT
  Age: 46 Year
  Sex: Female

DRUGS (1)
  1. SKYRIZI [Suspect]
     Active Substance: RISANKIZUMAB-RZAA
     Indication: Product used for unknown indication
     Route: 058
     Dates: start: 20240829

REACTIONS (7)
  - Intestinal obstruction [Recovering/Resolving]
  - Thrombosis [Unknown]
  - Thrombosis [Recovering/Resolving]
  - Nasopharyngitis [Unknown]
  - Weight decreased [Recovering/Resolving]
  - Vomiting [Not Recovered/Not Resolved]
  - Malnutrition [Recovering/Resolving]

NARRATIVE: CASE EVENT DATE: 20250101
